FAERS Safety Report 4845875-7 (Version None)
Quarter: 2005Q4

REPORT INFORMATION
  Report Type: 
  Country: None (occurrence: None)
  Receive Date: 20051201
  Receipt Date: 20051115
  Transmission Date: 20060501
  Serious: Yes (Life-Threatening, Other)
  Sender: FDA-Public Use
  Company Number: 2005BL006927

PATIENT
  Sex: Female

DRUGS (1)
  1. MINIMS GENTAMICIN SULFATE (GENTAMICIN SULFATE) [Suspect]
     Dosage: UNKNOWN
     Route: 065

REACTIONS (1)
  - ANAPHYLACTIC REACTION [None]
